FAERS Safety Report 16119477 (Version 1)
Quarter: 2019Q1

REPORT INFORMATION
  Report Type: Spontaneous
  Country: CA (occurrence: CA)
  Receive Date: 20190326
  Receipt Date: 20190326
  Transmission Date: 20190418
  Serious: Yes (Death, Hospitalization)
  Sender: FDA-Public Use
  Company Number: CA-CELGENEUS-CAN-20190307698

PATIENT
  Age: 62 Year
  Sex: Female

DRUGS (1)
  1. REVLIMID [Suspect]
     Active Substance: LENALIDOMIDE
     Indication: PLASMA CELL MYELOMA
     Dosage: 10 MILLIGRAM
     Route: 048
     Dates: end: 201901

REACTIONS (5)
  - Lactic acidosis [Fatal]
  - Plasma cell myeloma [Fatal]
  - Renal failure [Fatal]
  - Seizure [Unknown]
  - Sepsis [Fatal]

NARRATIVE: CASE EVENT DATE: 20190217
